FAERS Safety Report 6913588-3 (Version None)
Quarter: 2010Q3

REPORT INFORMATION
  Report Type: 
  Country: None (occurrence: None)
  Receive Date: 20100809
  Receipt Date: 20100730
  Transmission Date: 20110219
  Serious: Yes (Hospitalization, Other)
  Sender: FDA-Public Use
  Company Number: JP-NOVOPROD-310937

PATIENT
  Age: 72 Year
  Sex: Male
  Weight: 72 kg

DRUGS (8)
  1. NOVORAPID CHU FLEXPEN [Suspect]
     Indication: TYPE 2 DIABETES MELLITUS
     Dosage: 10 U, QD
     Route: 058
     Dates: start: 20100225, end: 20100622
  2. NOVORAPID 30 MIX CHU FLEXPEN [Suspect]
     Indication: TYPE 2 DIABETES MELLITUS
     Dosage: 3 U, QD
     Route: 058
     Dates: start: 20090723, end: 20100224
  3. DOXAZOSIN MESYLATE [Concomitant]
     Indication: HYPERTENSION
     Dosage: 2 MG, UNK
     Route: 048
     Dates: start: 20090401
  4. NORVASC [Concomitant]
     Route: 048
  5. LASIX [Concomitant]
     Indication: RENAL FAILURE CHRONIC
     Dosage: 40 MG, UNK
     Route: 048
     Dates: start: 20090401
  6. ATELEC [Concomitant]
     Indication: RENAL FAILURE CHRONIC
     Dosage: 10 MG, UNK
     Route: 048
     Dates: start: 20090401
  7. TAKEPRON [Concomitant]
     Dosage: 15 MG, UNK
     Route: 048
  8. KAYEXALATE [Concomitant]
     Dosage: 20 MG, UNK
     Route: 048
     Dates: start: 20090401

REACTIONS (4)
  - ANTI-INSULIN ANTIBODY INCREASED [None]
  - AUTOANTIBODY POSITIVE [None]
  - HYPERGLYCAEMIA [None]
  - HYPOGLYCAEMIA [None]
